FAERS Safety Report 5017338-X (Version None)
Quarter: 2006Q2

REPORT INFORMATION
  Report Type: 
  Country: None (occurrence: None)
  Receive Date: 20060414
  Receipt Date: 20060228
  Transmission Date: 20061013
  Serious: No
  Sender: FDA-Public Use
  Company Number: 2006SP000994

PATIENT
  Age: 55 Year
  Sex: Male
  Weight: 86.1834 kg

DRUGS (5)
  1. LUNESTA [Suspect]
     Indication: INSOMNIA
     Dosage: 3 MG; PRN; ORAL; SEE IMAGE
     Route: 048
     Dates: start: 20050101, end: 20060101
  2. LUNESTA [Suspect]
     Indication: INSOMNIA
     Dosage: 3 MG; PRN; ORAL; SEE IMAGE
     Route: 048
     Dates: start: 20060101
  3. ASACOL [Concomitant]
  4. TETRACYCLINE [Concomitant]
  5. MULTIVITAMIN [Concomitant]

REACTIONS (1)
  - MIDDLE INSOMNIA [None]
